FAERS Safety Report 5199262-5 (Version None)
Quarter: 2006Q4

REPORT INFORMATION
  Report Type: 
  Country: None (occurrence: None)
  Receive Date: 20061016
  Receipt Date: 20060619
  Transmission Date: 20070319
  Serious: No
  Sender: FDA-Public Use
  Company Number: 2006SP002412

PATIENT
  Age: 66 Year
  Sex: Female

DRUGS (8)
  1. LUNESTA [Suspect]
     Indication: INSOMNIA
     Dosage: HS; ORAL
     Route: 048
     Dates: start: 20060101, end: 20060101
  2. SEROQUEL [Concomitant]
  3. METOCLOPRAMIDE [Concomitant]
  4. ADVAIR DISKUS 100/50 [Concomitant]
  5. FLONASE [Concomitant]
  6. ALBUTEROL [Concomitant]
  7. TRAMADOL HCL [Concomitant]
  8. LIDODERM [Concomitant]

REACTIONS (3)
  - DIZZINESS [None]
  - FALL [None]
  - MEMORY IMPAIRMENT [None]
